FAERS Safety Report 4966036-7 (Version None)
Quarter: 2006Q2

REPORT INFORMATION
  Report Type: 
  Country: None (occurrence: None)
  Receive Date: 20060407
  Receipt Date: 20060330
  Transmission Date: 20061013
  Serious: Yes (Life-Threatening)
  Sender: FDA-Public Use
  Company Number: FR-GLAXOSMITHKLINE-B0419054A

PATIENT
  Age: 48 Year
  Sex: Male

DRUGS (9)
  1. AUGMENTIN '125' [Suspect]
     Route: 042
     Dates: start: 20060102
  2. ATENOLOL [Concomitant]
     Route: 048
     Dates: start: 20060101
  3. DIPRIVAN [Concomitant]
     Route: 042
     Dates: start: 20060102
  4. SUFENTA [Concomitant]
     Route: 042
     Dates: start: 20060102
  5. NIMBEX [Concomitant]
     Route: 042
     Dates: start: 20060102
  6. DROLEPTAN [Concomitant]
     Route: 042
     Dates: start: 20060102
  7. LACTATE RINGER [Concomitant]
     Route: 042
     Dates: start: 20060102
  8. DESFLURANE [Concomitant]
     Route: 065
     Dates: start: 20060102
  9. SEVOFLURANE [Concomitant]
     Route: 065
     Dates: start: 20060109

REACTIONS (12)
  - ANAPHYLACTIC SHOCK [None]
  - ARRHYTHMIA [None]
  - CARDIAC ARREST [None]
  - CIRCULATORY COLLAPSE [None]
  - CORONARY ARTERY STENOSIS [None]
  - HISTAMINE LEVEL INCREASED [None]
  - HYPOCAPNIA [None]
  - HYPOTENSION [None]
  - LUNG HYPERINFLATION [None]
  - SUPRAVENTRICULAR TACHYCARDIA [None]
  - TACHYCARDIA [None]
  - TRYPTASE [None]
